FAERS Safety Report 21602843 (Version 1)
Quarter: 2022Q4

REPORT INFORMATION
  Report Type: Spontaneous
  Country: US (occurrence: None)
  Receive Date: 20221115
  Receipt Date: 20221115
  Transmission Date: 20230113
  Serious: Yes (Other)
  Sender: FDA-Public Use
  Company Number: None

PATIENT
  Age: 72 Year
  Sex: Male
  Weight: 76.2 kg

DRUGS (8)
  1. DEVICE [Suspect]
     Active Substance: DEVICE
  2. MOLNUPIRAVIR [Suspect]
     Active Substance: MOLNUPIRAVIR
  3. WARFARIN [Concomitant]
     Active Substance: WARFARIN
  4. Iosartin/hctz [Concomitant]
  5. AMLODIPINE [Concomitant]
     Active Substance: AMLODIPINE BESYLATE
  6. METOPROLOL [Concomitant]
     Active Substance: METOPROLOL
  7. aortic heart valve + pacemaker [Concomitant]
  8. VITAMIN D [Concomitant]
     Active Substance: VITAMIN D NOS

REACTIONS (3)
  - SARS-CoV-2 test positive [None]
  - Malaise [None]
  - Cough [None]

NARRATIVE: CASE EVENT DATE: 20221115
